FAERS Safety Report 4546237-2 (Version None)
Quarter: 2005Q1

REPORT INFORMATION
  Report Type: 
  Country: None (occurrence: None)
  Receive Date: 20050106
  Receipt Date: 20041223
  Transmission Date: 20050727
  Serious: Yes (Life-Threatening)
  Sender: FDA-Public Use
  Company Number: GB-JNJFOC-20041100092

PATIENT
  Age: 24 Year
  Sex: Male

DRUGS (1)
  1. HALOPERIDOL [Suspect]
     Route: 049

REACTIONS (1)
  - ANAPHYLACTIC REACTION [None]
